FAERS Safety Report 5448136-0 (Version None)
Quarter: 2007Q3

REPORT INFORMATION
  Report Type: 
  Country: None (occurrence: None)
  Receive Date: 20070803
  Receipt Date: 20070529
  Transmission Date: 20080115
  Serious: No
  Sender: FDA-Public Use
  Company Number: 200711667BWH

PATIENT
  Age: 57 Year
  Sex: Male

DRUGS (3)
  1. NEXAVAR [Suspect]
     Indication: LUNG NEOPLASM MALIGNANT
     Dosage: 400 MG, BID, ORAL
     Route: 048
     Dates: start: 20070508, end: 20070501
  2. NEXAVAR [Suspect]
     Indication: LUNG NEOPLASM MALIGNANT
     Dosage: 400 MG, BID, ORAL
     Route: 048
     Dates: start: 20070501
  3. IMMUNOSUPPRESSANTS [Concomitant]

REACTIONS (7)
  - BACK PAIN [None]
  - ORAL PAIN [None]
  - PAIN IN EXTREMITY [None]
  - PYREXIA [None]
  - STOMATITIS [None]
  - TONGUE DISORDER [None]
  - VIRAL INFECTION [None]
